FAERS Safety Report 7336037-2 (Version None)
Quarter: 2011Q1

REPORT INFORMATION
  Report Type: 
  Country: None (occurrence: None)
  Receive Date: 20110301
  Receipt Date: 20110301
  Transmission Date: 20110831
  Serious: Yes (Hospitalization)
  Sender: FDA-Public Use
  Company Number: None

PATIENT
  Age: 75 Year
  Sex: Male
  Weight: 85 kg

DRUGS (2)
  1. VARDENAFIL HYDROCHLORIDE (LEVITRA) [Suspect]
     Indication: ERECTILE DYSFUNCTION
     Dosage: 15 MG PRN PO
     Route: 048
     Dates: start: 20060307
  2. TAMSULOSIN [Suspect]
     Indication: OBSTRUCTIVE UROPATHY
     Dosage: 0.4 MG EVERY DAY PO
     Route: 048
     Dates: start: 20070918

REACTIONS (8)
  - SYNCOPE [None]
  - PARAESTHESIA [None]
  - TREMOR [None]
  - FALL [None]
  - PALPITATIONS [None]
  - PRESYNCOPE [None]
  - DIZZINESS [None]
  - HYPOAESTHESIA [None]
